FAERS Safety Report 24300282 (Version 1)
Quarter: 2024Q3

REPORT INFORMATION
  Report Type: Spontaneous
  Country: US (occurrence: US)
  Receive Date: 20240909
  Receipt Date: 20240909
  Transmission Date: 20241017
  Serious: No
  Sender: MERCK
  Company Number: US-009507513-2408USA007066

PATIENT
  Age: 68 Year
  Sex: Female

DRUGS (2)
  1. BRIDION [Suspect]
     Active Substance: SUGAMMADEX
     Indication: Reversal of sedation
     Dosage: 1-2ML VIAL
     Route: 042
     Dates: start: 202408, end: 202408
  2. BRIDION [Suspect]
     Active Substance: SUGAMMADEX
     Dosage: 2ML VIAL
     Route: 042
     Dates: start: 202408, end: 202408

REACTIONS (1)
  - Recurrence of neuromuscular blockade [Recovered/Resolved]

NARRATIVE: CASE EVENT DATE: 20240801
